FAERS Safety Report 24389550 (Version 9)
Quarter: 2025Q2

REPORT INFORMATION
  Report Type: Spontaneous
  Country: AU (occurrence: AU)
  Receive Date: 20241003
  Receipt Date: 20250617
  Transmission Date: 20250716
  Serious: Yes (Hospitalization, Other)
  Sender: ABBVIE
  Company Number: AU-RICHTER-2024-GR-007552

PATIENT
  Age: 31 Year
  Sex: Male

DRUGS (9)
  1. CARIPRAZINE [Suspect]
     Active Substance: CARIPRAZINE
     Indication: Bipolar disorder
     Route: 048
     Dates: start: 20230124
  2. COMIRNATY (TOZINAMERAN) [Suspect]
     Active Substance: TOZINAMERAN
     Indication: COVID-19 immunisation
     Route: 065
  3. ATORVASTATIN [Concomitant]
     Active Substance: ATORVASTATIN
     Indication: Product used for unknown indication
     Route: 065
  4. ASTRAZENECA COVID-19 VACCINE [Suspect]
     Active Substance: AZD-1222
     Indication: COVID-19 immunisation
     Route: 065
  5. CLOPIDOGREL [Concomitant]
     Active Substance: CLOPIDOGREL BISULFATE
     Indication: Product used for unknown indication
     Dosage: 75 MG DAILY
     Route: 065
  6. DOSULEPIN HYDROCHLORIDE [Suspect]
     Active Substance: DOTHIEPIN HYDROCHLORIDE
     Indication: Depression
     Route: 065
     Dates: start: 20240128
  7. ASPIRIN [Concomitant]
     Active Substance: ASPIRIN
     Indication: Product used for unknown indication
     Dosage: 100 MG DAILY
     Route: 065
  8. MOUNJARO [Suspect]
     Active Substance: TIRZEPATIDE
     Indication: Product used for unknown indication
     Route: 065
  9. LATUDA [Suspect]
     Active Substance: LURASIDONE HYDROCHLORIDE
     Indication: Bipolar disorder
     Route: 065
     Dates: start: 20240111

REACTIONS (7)
  - Thrombosis [Not Recovered/Not Resolved]
  - Cerebellar stroke [Not Recovered/Not Resolved]
  - Product use in unapproved indication [Unknown]
  - Cerebral ischaemia [Unknown]
  - Asthenia [Not Recovered/Not Resolved]
  - Restlessness [Not Recovered/Not Resolved]
  - Interchange of vaccine products [Recovered/Resolved]

NARRATIVE: CASE EVENT DATE: 20240101
